FAERS Safety Report 4518691-3 (Version None)
Quarter: 2004Q4

REPORT INFORMATION
  Report Type: 
  Country: None (occurrence: None)
  Receive Date: 20041201
  Receipt Date: 20041119
  Transmission Date: 20050328
  Serious: Yes (Other)
  Sender: FDA-Public Use
  Company Number: THQ2004A00853

PATIENT
  Age: 49 Year
  Sex: Male

DRUGS (3)
  1. ACTOS [Suspect]
     Indication: DIABETES MELLITUS
     Dosage: 15 MG (15 MG, IN THE MORNING) PER ORAL
     Route: 048
     Dates: start: 20021201, end: 20040512
  2. DIOVAN [Concomitant]
  3. LIPITOR [Concomitant]

REACTIONS (11)
  - CHEST PAIN [None]
  - CONFUSIONAL STATE [None]
  - DIZZINESS [None]
  - GASTRIC DISORDER [None]
  - GRAND MAL CONVULSION [None]
  - HYPERVENTILATION [None]
  - HYPOGLYCAEMIA [None]
  - LOSS OF CONSCIOUSNESS [None]
  - SOMNOLENCE [None]
  - URINARY INCONTINENCE [None]
  - VOMITING [None]
